FAERS Safety Report 24815361 (Version 2)
Quarter: 2025Q2

REPORT INFORMATION
  Report Type: Spontaneous
  Country: US (occurrence: US)
  Receive Date: 20250107
  Receipt Date: 20250416
  Transmission Date: 20250717
  Serious: Yes (Other)
  Sender: Kenvue
  Company Number: US-JNTL CONSUMER HEALTH MIDDLE EAST FZ-LLC-20241208624

PATIENT
  Age: 29 Year
  Sex: Female

DRUGS (1)
  1. ACETAMINOPHEN [Suspect]
     Active Substance: ACETAMINOPHEN
     Indication: Product used for unknown indication
     Route: 065

REACTIONS (2)
  - Acute hepatic failure [Unknown]
  - Toxicity to various agents [Unknown]
